FAERS Safety Report 16782008 (Version 2)
Quarter: 2019Q3

REPORT INFORMATION
  Report Type: Spontaneous
  Country: JP (occurrence: JP)
  Receive Date: 20190906
  Receipt Date: 20190909
  Transmission Date: 20191005
  Serious: Yes (Death, Other)
  Sender: FDA-Public Use
  Company Number: JP-PFIZER INC-2019387798

PATIENT
  Age: 200 Day
  Sex: Male

DRUGS (1)
  1. RAPALIMUS [Suspect]
     Active Substance: SIROLIMUS
     Indication: LYMPHANGIOMA
     Dosage: 0.6MG A DAY (0.6MG PER TIME)
     Route: 048
     Dates: start: 20190726

REACTIONS (4)
  - Sepsis [Fatal]
  - Product administered to patient of inappropriate age [Unknown]
  - Wrong technique in product usage process [Unknown]
  - Drug level increased [Unknown]

NARRATIVE: CASE EVENT DATE: 2019
